FAERS Safety Report 7208106-9 (Version None)
Quarter: 2010Q4

REPORT INFORMATION
  Report Type: 
  Country: None (occurrence: None)
  Receive Date: 20101230
  Receipt Date: 20101230
  Transmission Date: 20110411
  Serious: Yes (Hospitalization)
  Sender: FDA-Public Use
  Company Number: None

PATIENT
  Sex: Female
  Weight: 49.8957 kg

DRUGS (1)
  1. PPROPONAPAP TAB. 100-650 [Suspect]
     Indication: PAIN
     Dosage: 1 EVERY 6 HR. EVERY DAY
     Dates: start: 19850101, end: 20100101

REACTIONS (1)
  - CARDIAC DISORDER [None]
